FAERS Safety Report 9348147 (Version 1)
Quarter: 2013Q2

REPORT INFORMATION
  Report Type: Spontaneous
  Country: CA (occurrence: CA)
  Receive Date: 20130614
  Receipt Date: 20130614
  Transmission Date: 20140414
  Serious: Yes (Other)
  Sender: FDA-Public Use
  Company Number: CA-AMGEN-CANSP2013041748

PATIENT
  Age: 84 Year
  Sex: Female
  Weight: 45.5 kg

DRUGS (3)
  1. PROLIA [Suspect]
     Indication: PRODUCT USED FOR UNKNOWN INDICATION
     Dosage: UNK
     Route: 065
     Dates: end: 201209
  2. AVAMYS [Suspect]
     Indication: PRODUCT USED FOR UNKNOWN INDICATION
     Dosage: 1SPR TWICE PER DAY
     Route: 045
     Dates: start: 20130523
  3. CORDARONE [Concomitant]
     Dosage: UNK UNK, QD

REACTIONS (2)
  - Dizziness [Unknown]
  - Atrial fibrillation [Unknown]
